FAERS Safety Report 6228265-4 (Version None)
Quarter: 2009Q2

REPORT INFORMATION
  Report Type: 
  Country: None (occurrence: None)
  Receive Date: 20090612
  Receipt Date: 20090603
  Transmission Date: 20091009
  Serious: Yes (Death)
  Sender: FDA-Public Use
  Company Number: PHHY2009JP21897

PATIENT
  Age: 73 Year
  Sex: Female

DRUGS (9)
  1. NEORAL [Suspect]
     Indication: PYODERMA GANGRENOSUM
     Dosage: 250 MG DAILY
     Route: 048
  2. RINDERON [Concomitant]
     Indication: PYODERMA GANGRENOSUM
     Dosage: 4 MG
     Route: 048
  3. RINDERON [Concomitant]
     Dosage: 2 MG
     Route: 048
  4. ENBREL [Concomitant]
     Indication: PYODERMA GANGRENOSUM
     Dosage: 25 MG
     Route: 058
  5. PREDNISOLONE [Concomitant]
     Indication: RHEUMATOID ARTHRITIS
     Dosage: 2 MG
     Route: 048
  6. BUCILLAMINE [Concomitant]
     Indication: RHEUMATOID ARTHRITIS
     Dosage: 200 MG
     Route: 048
  7. METHOTREXATE [Concomitant]
     Indication: RHEUMATOID ARTHRITIS
     Dosage: 6 MG
     Route: 048
  8. BETAMETHASONE VALERATE [Concomitant]
  9. GENTAMICIN [Concomitant]

REACTIONS (4)
  - ABDOMINAL DISTENSION [None]
  - DIARRHOEA [None]
  - HEPATIC FUNCTION ABNORMAL [None]
  - URINARY TRACT INFECTION [None]
